FAERS Safety Report 7602701-0 (Version None)
Quarter: 2011Q3

REPORT INFORMATION
  Report Type: 
  Country: None (occurrence: None)
  Receive Date: 20110712
  Receipt Date: 20110705
  Transmission Date: 20111222
  Serious: Yes (Hospitalization)
  Sender: FDA-Public Use
  Company Number: JP-CELGENEUS-087-21660-11062511

PATIENT
  Sex: Female
  Weight: 45 kg

DRUGS (8)
  1. VOLTAREN [Concomitant]
     Indication: HEADACHE
     Dosage: 75 MILLIGRAM
     Route: 065
     Dates: start: 20110611
  2. VOLTAREN [Concomitant]
     Dosage: 25 MILLIGRAM
     Route: 054
     Dates: start: 20110703
  3. VALSARTAN [Concomitant]
     Indication: HYPERTENSION
     Dosage: 80 MILLIGRAM
     Route: 048
     Dates: start: 20110608
  4. ABRAXANE [Suspect]
     Indication: BREAST CANCER METASTATIC
     Dosage: 214 MILLIGRAM
     Route: 051
     Dates: start: 20110513
  5. ABRAXANE [Suspect]
     Route: 051
     Dates: start: 20110624, end: 20110701
  6. AMLODIPINE [Concomitant]
     Indication: HYPERTENSION
     Dosage: 1 TABLET
     Route: 048
     Dates: start: 20110608, end: 20110701
  7. OMEPRAZOLE [Concomitant]
     Dosage: 20 MILLIGRAM
     Route: 065
     Dates: start: 20110611
  8. DEPAS [Concomitant]
     Dosage: 1 MILLIGRAM
     Route: 065
     Dates: start: 20110611

REACTIONS (1)
  - HEADACHE [None]
